FAERS Safety Report 5901532-7 (Version None)
Quarter: 2008Q3

REPORT INFORMATION
  Report Type: 
  Country: None (occurrence: None)
  Receive Date: 20080926
  Receipt Date: 20080926
  Transmission Date: 20090109
  Serious: No
  Sender: FDA-Public Use
  Company Number: None

PATIENT
  Age: 74 Year
  Sex: Male
  Weight: 85 kg

DRUGS (1)
  1. VARENICLINE [Suspect]
     Dosage: 1 TAB BID PO
     Route: 048
     Dates: start: 20080423, end: 20080425

REACTIONS (1)
  - HEADACHE [None]
